FAERS Safety Report 6928255-X (Version None)
Quarter: 2010Q3

REPORT INFORMATION
  Report Type: 
  Country: None (occurrence: None)
  Receive Date: 20100817
  Receipt Date: 20100809
  Transmission Date: 20110219
  Serious: Yes (Life-Threatening, Hospitalization)
  Sender: FDA-Public Use
  Company Number: JP-ROCHE-719600

PATIENT
  Sex: Female
  Weight: 48 kg

DRUGS (12)
  1. HERCEPTIN [Suspect]
     Indication: BREAST CANCER METASTATIC
     Route: 041
     Dates: start: 20090612, end: 20100612
  2. HERCEPTIN [Suspect]
     Route: 041
     Dates: start: 20090619, end: 20100226
  3. HERCEPTIN [Suspect]
     Route: 041
     Dates: start: 20100423, end: 20100423
  4. HERCEPTIN [Suspect]
     Route: 041
     Dates: start: 20100430, end: 20100730
  5. XELODA [Suspect]
     Indication: BREAST CANCER METASTATIC
     Dosage: 3 WEEKS ADMINISTRATION FOLLOWED BY 1 WEEK REST.
     Route: 048
     Dates: start: 20090821, end: 20100223
  6. XELODA [Suspect]
     Dosage: 2 WEEKS ADMINISTRATION FOLLOWED BY 1 WEEK REST.
     Route: 048
     Dates: start: 20100305, end: 20100408
  7. TYKERB [Suspect]
     Indication: BREAST CANCER METASTATIC
     Route: 048
     Dates: start: 20100305, end: 20100415
  8. NAVELBINE [Concomitant]
     Dosage: 2 WEEKS ADMINISTRATION FOLLOWED BY 1 WEEK REST.
     Dates: start: 20100423, end: 20100730
  9. CALONAL [Concomitant]
     Route: 065
     Dates: start: 20090612, end: 20090612
  10. PYDOXAL [Concomitant]
     Route: 065
     Dates: start: 20091211, end: 20100408
  11. NAVELBINE [Concomitant]
     Dosage: 2 WEEKS ADMINISTRATION FOLLOWED BY 1 WEEK REST
     Route: 042
     Dates: start: 20100423, end: 20100730
  12. MAGLAX [Concomitant]
     Route: 048
     Dates: start: 20100625, end: 20100701

REACTIONS (8)
  - ACUTE PULMONARY OEDEMA [None]
  - ATRIAL FIBRILLATION [None]
  - BLOOD PRESSURE IMMEASURABLE [None]
  - CARDIAC FAILURE ACUTE [None]
  - CHEST DISCOMFORT [None]
  - CORONARY ARTERY STENOSIS [None]
  - DYSPNOEA [None]
  - WHEEZING [None]
